FAERS Safety Report 25918072 (Version 1)
Quarter: 2025Q4

REPORT INFORMATION
  Report Type: Spontaneous
  Country: US (occurrence: US)
  Receive Date: 20251014
  Receipt Date: 20251014
  Transmission Date: 20260117
  Serious: Yes (Other)
  Sender: MYLAN
  Company Number: US-MYLANLABS-2025M1086923

PATIENT
  Age: 58 Year
  Sex: Male

DRUGS (36)
  1. GABAPENTIN [Suspect]
     Active Substance: GABAPENTIN
     Indication: Glossopharyngeal neuralgia
     Dosage: UNK
  2. GABAPENTIN [Suspect]
     Active Substance: GABAPENTIN
     Dosage: UNK
     Route: 065
  3. GABAPENTIN [Suspect]
     Active Substance: GABAPENTIN
     Dosage: UNK
     Route: 065
  4. GABAPENTIN [Suspect]
     Active Substance: GABAPENTIN
     Dosage: UNK
  5. AMITRIPTYLINE [Suspect]
     Active Substance: AMITRIPTYLINE
     Indication: Glossopharyngeal neuralgia
     Dosage: UNK
  6. AMITRIPTYLINE [Suspect]
     Active Substance: AMITRIPTYLINE
     Dosage: UNK
     Route: 065
  7. AMITRIPTYLINE [Suspect]
     Active Substance: AMITRIPTYLINE
     Dosage: UNK
     Route: 065
  8. AMITRIPTYLINE [Suspect]
     Active Substance: AMITRIPTYLINE
     Dosage: UNK
  9. PREGABALIN [Suspect]
     Active Substance: PREGABALIN
     Indication: Glossopharyngeal neuralgia
     Dosage: UNK
  10. PREGABALIN [Suspect]
     Active Substance: PREGABALIN
     Dosage: UNK
     Route: 065
  11. PREGABALIN [Suspect]
     Active Substance: PREGABALIN
     Dosage: UNK
     Route: 065
  12. PREGABALIN [Suspect]
     Active Substance: PREGABALIN
     Dosage: UNK
  13. DEXAMETHASONE SODIUM PHOSPHATE [Suspect]
     Active Substance: DEXAMETHASONE SODIUM PHOSPHATE
     Indication: Glossopharyngeal neuralgia
     Dosage: 5 MILLIGRAM (RECEIVED 1ML OF SOLUTION CONTAINING 10?MG/ML DEXAMETHASONE IN 1% LIDOCAINE IN 1:1 RATIO, RIGHT PARAPHARYNGEAL SPACE)
  14. DEXAMETHASONE SODIUM PHOSPHATE [Suspect]
     Active Substance: DEXAMETHASONE SODIUM PHOSPHATE
     Dosage: 5 MILLIGRAM (RECEIVED 1ML OF SOLUTION CONTAINING 10?MG/ML DEXAMETHASONE IN 1% LIDOCAINE IN 1:1 RATIO, RIGHT PARAPHARYNGEAL SPACE)
     Route: 065
  15. DEXAMETHASONE SODIUM PHOSPHATE [Suspect]
     Active Substance: DEXAMETHASONE SODIUM PHOSPHATE
     Dosage: 5 MILLIGRAM (RECEIVED 1ML OF SOLUTION CONTAINING 10?MG/ML DEXAMETHASONE IN 1% LIDOCAINE IN 1:1 RATIO, RIGHT PARAPHARYNGEAL SPACE)
     Route: 065
  16. DEXAMETHASONE SODIUM PHOSPHATE [Suspect]
     Active Substance: DEXAMETHASONE SODIUM PHOSPHATE
     Dosage: 5 MILLIGRAM (RECEIVED 1ML OF SOLUTION CONTAINING 10?MG/ML DEXAMETHASONE IN 1% LIDOCAINE IN 1:1 RATIO, RIGHT PARAPHARYNGEAL SPACE)
  17. DULOXETINE [Suspect]
     Active Substance: DULOXETINE
     Indication: Glossopharyngeal neuralgia
     Dosage: UNK
  18. DULOXETINE [Suspect]
     Active Substance: DULOXETINE
     Dosage: UNK
     Route: 065
  19. DULOXETINE [Suspect]
     Active Substance: DULOXETINE
     Dosage: UNK
     Route: 065
  20. DULOXETINE [Suspect]
     Active Substance: DULOXETINE
     Dosage: UNK
  21. CARBAMAZEPINE [Suspect]
     Active Substance: CARBAMAZEPINE
     Indication: Glossopharyngeal neuralgia
     Dosage: UNK
  22. CARBAMAZEPINE [Suspect]
     Active Substance: CARBAMAZEPINE
     Dosage: UNK
     Route: 065
  23. CARBAMAZEPINE [Suspect]
     Active Substance: CARBAMAZEPINE
     Dosage: UNK
     Route: 065
  24. CARBAMAZEPINE [Suspect]
     Active Substance: CARBAMAZEPINE
     Dosage: UNK
  25. LIDOCAINE [Concomitant]
     Active Substance: LIDOCAINE
     Indication: Local anaesthesia
     Dosage: 1 MILLILITER (RECEIVED SOLUTION CONTAINING 10 MG/ML DEXAMETHASONE IN 1% LIDOCAINE IN 1:1 RATIO, RIGHT PARAPHARYNGEAL SPACE)
  26. LIDOCAINE [Concomitant]
     Active Substance: LIDOCAINE
     Dosage: 1 MILLILITER (RECEIVED SOLUTION CONTAINING 10 MG/ML DEXAMETHASONE IN 1% LIDOCAINE IN 1:1 RATIO, RIGHT PARAPHARYNGEAL SPACE)
     Route: 065
  27. LIDOCAINE [Concomitant]
     Active Substance: LIDOCAINE
     Dosage: 1 MILLILITER (RECEIVED SOLUTION CONTAINING 10 MG/ML DEXAMETHASONE IN 1% LIDOCAINE IN 1:1 RATIO, RIGHT PARAPHARYNGEAL SPACE)
     Route: 065
  28. LIDOCAINE [Concomitant]
     Active Substance: LIDOCAINE
     Dosage: 1 MILLILITER (RECEIVED SOLUTION CONTAINING 10 MG/ML DEXAMETHASONE IN 1% LIDOCAINE IN 1:1 RATIO, RIGHT PARAPHARYNGEAL SPACE)
  29. LIDOCAINE [Concomitant]
     Active Substance: LIDOCAINE
     Indication: Local anaesthesia
     Dosage: UNK (LOCAL ANAESTHESIA)
  30. LIDOCAINE [Concomitant]
     Active Substance: LIDOCAINE
     Dosage: UNK (LOCAL ANAESTHESIA)
     Route: 065
  31. LIDOCAINE [Concomitant]
     Active Substance: LIDOCAINE
     Dosage: UNK (LOCAL ANAESTHESIA)
     Route: 065
  32. LIDOCAINE [Concomitant]
     Active Substance: LIDOCAINE
     Dosage: UNK (LOCAL ANAESTHESIA)
  33. OMNIPAQUE [Concomitant]
     Active Substance: IOHEXOL
     Indication: Scan with contrast
     Dosage: 0.3 MILLILITER
  34. OMNIPAQUE [Concomitant]
     Active Substance: IOHEXOL
     Dosage: 0.3 MILLILITER
     Route: 065
  35. OMNIPAQUE [Concomitant]
     Active Substance: IOHEXOL
     Dosage: 0.3 MILLILITER
     Route: 065
  36. OMNIPAQUE [Concomitant]
     Active Substance: IOHEXOL
     Dosage: 0.3 MILLILITER

REACTIONS (1)
  - Therapy non-responder [Unknown]
